FAERS Safety Report 7375772-7 (Version None)
Quarter: 2011Q1

REPORT INFORMATION
  Report Type: 
  Country: None (occurrence: None)
  Receive Date: 20110315
  Receipt Date: 20110302
  Transmission Date: 20110831
  Serious: Yes (Other)
  Sender: FDA-Public Use
  Company Number: 2011SP010110

PATIENT
  Sex: Female

DRUGS (2)
  1. RIBAVIRIN [Suspect]
     Indication: HEPATITIS C
  2. PEGASYS [Suspect]
     Indication: HEPATITIS C

REACTIONS (14)
  - ABDOMINAL PAIN UPPER [None]
  - FATIGUE [None]
  - RED BLOOD CELL COUNT DECREASED [None]
  - DYSPHAGIA [None]
  - ANXIETY [None]
  - ORAL INFECTION [None]
  - PANIC ATTACK [None]
  - PYREXIA [None]
  - GINGIVAL INFECTION [None]
  - CIRCULATORY COLLAPSE [None]
  - WHITE BLOOD CELL COUNT DECREASED [None]
  - LETHARGY [None]
  - WEIGHT DECREASED [None]
  - GASTROOESOPHAGEAL REFLUX DISEASE [None]
